FAERS Safety Report 26129842 (Version 1)
Quarter: 2025Q4

REPORT INFORMATION
  Report Type: Report from Study
  Country: US (occurrence: US)
  Receive Date: 20251208
  Receipt Date: 20251208
  Transmission Date: 20260117
  Serious: Yes (Other)
  Sender: ALEXION PHARMACEUTICALS
  Company Number: US-AstraZeneca-CH-01007801A

PATIENT
  Sex: Male
  Weight: 44 kg

DRUGS (20)
  1. SELUMETINIB [Suspect]
     Active Substance: SELUMETINIB
     Indication: Neoplasm malignant
     Dosage: 35 MILLIGRAM, BID
  2. HYDROCODONE [Concomitant]
     Active Substance: HYDROCODONE
     Route: 065
  3. LISINOPRIL [Concomitant]
     Active Substance: LISINOPRIL
     Route: 065
  4. MUPIROCIN [Concomitant]
     Active Substance: MUPIROCIN
     Route: 065
  5. NARCAN [Concomitant]
     Active Substance: NALOXONE HYDROCHLORIDE
     Route: 065
  6. ONDANSETRON [Concomitant]
     Active Substance: ONDANSETRON
     Route: 065
  7. OXYCODONE [Concomitant]
     Active Substance: OXYCODONE
     Route: 065
  8. PANTOPRAZOLE [Concomitant]
     Active Substance: PANTOPRAZOLE
     Route: 065
  9. PRAVASTATIN [Concomitant]
     Active Substance: PRAVASTATIN
     Route: 065
  10. SERTRALINE [Concomitant]
     Active Substance: SERTRALINE HYDROCHLORIDE
     Route: 065
  11. VENTOLIN [Concomitant]
     Active Substance: ALBUTEROL SULFATE
     Route: 065
  12. VITAMIN B12 [Concomitant]
     Active Substance: CYANOCOBALAMIN
     Route: 065
  13. ZYRTEC [Concomitant]
     Active Substance: CETIRIZINE HYDROCHLORIDE
     Route: 065
  14. ASPIRIN [Concomitant]
     Active Substance: ASPIRIN
  15. VITAMIN B COMPLEX [Concomitant]
     Active Substance: CYANOCOBALAMIN\DEXPANTHENOL\NIACINAMIDE\PYRIDOXINE HYDROCHLORIDE\RIBOFLAVIN 5^-PHOSPHATE SODIUM\THIA
  16. VITAMIN D3 [Concomitant]
     Active Substance: CHOLECALCIFEROL
  17. TRIMETHOPRIM [Concomitant]
     Active Substance: TRIMETHOPRIM
  18. VITAMIN D [Concomitant]
     Active Substance: VITAMIN D NOS
  19. SULFAMETHOXAZOLE [Concomitant]
     Active Substance: SULFAMETHOXAZOLE
  20. ZINC [Concomitant]
     Active Substance: ZINC
     Dosage: UNK

REACTIONS (1)
  - Pneumonia [Recovering/Resolving]
